FAERS Safety Report 5805348-1 (Version None)
Quarter: 2008Q3

REPORT INFORMATION
  Report Type: 
  Country: None (occurrence: None)
  Receive Date: 20080710
  Receipt Date: 20080520
  Transmission Date: 20090109
  Serious: Yes (Death)
  Sender: FDA-Public Use
  Company Number: JP-RANBAXY-2008RR-14942

PATIENT

DRUGS (4)
  1. LAMIVUDINE [Suspect]
     Dosage: 800 MG, QD
  2. ZIDOVUDINE [Suspect]
     Dosage: 400 MG, QD
  3. LOPINAVIR [Suspect]
     Dosage: 800 MG, QD
  4. RITONAVIR [Suspect]
     Dosage: 200 MG, QD

REACTIONS (1)
  - IMMUNE RECONSTITUTION SYNDROME [None]
